FAERS Safety Report 24078576 (Version 1)
Quarter: 2024Q3

REPORT INFORMATION
  Report Type: Spontaneous
  Country: US (occurrence: US)
  Receive Date: 20240711
  Receipt Date: 20240711
  Transmission Date: 20241017
  Serious: Yes (Other)
  Sender: BAYER
  Company Number: US-BAYER-2024A096659

PATIENT
  Sex: Female

DRUGS (1)
  1. SKYLA [Suspect]
     Active Substance: LEVONORGESTREL
     Dosage: 14?G/DAY
     Route: 015
     Dates: start: 20221220

REACTIONS (3)
  - Pregnancy [None]
  - Haemorrhage in pregnancy [None]
  - Drug ineffective [None]

NARRATIVE: CASE EVENT DATE: 20240702
